FAERS Safety Report 16177063 (Version 1)
Quarter: 2019Q2

REPORT INFORMATION
  Report Type: Spontaneous
  Country: US (occurrence: US)
  Receive Date: 20190409
  Receipt Date: 20190409
  Transmission Date: 20190711
  Serious: No
  Sender: FDA-Public Use
  Company Number: US-009507513-1903USA011710

PATIENT
  Sex: Female
  Weight: 92.97 kg

DRUGS (4)
  1. NEXPLANON [Suspect]
     Active Substance: ETONOGESTREL
     Indication: CONTRACEPTION
     Dosage: IMPLANT, LEFT ARM, 3 YEARS
     Route: 059
  2. PANTOPRAZOLE [Concomitant]
     Active Substance: PANTOPRAZOLE
     Indication: DYSPEPSIA
     Dosage: UNK
  3. SERTRALINE HYDROCHLORIDE. [Concomitant]
     Active Substance: SERTRALINE HYDROCHLORIDE
     Indication: DEPRESSION
  4. PANTOPRAZOLE [Concomitant]
     Active Substance: PANTOPRAZOLE
     Indication: WEIGHT CONTROL

REACTIONS (2)
  - Weight increased [Not Recovered/Not Resolved]
  - Amenorrhoea [Not Recovered/Not Resolved]
